FAERS Safety Report 15398296 (Version 1)
Quarter: 2018Q4

REPORT INFORMATION
  Report Type: Spontaneous
  Country: GB (occurrence: GB)
  Receive Date: 20180918
  Receipt Date: 20180918
  Transmission Date: 20190204
  Serious: Yes (Other)
  Sender: FDA-Public Use
  Company Number: GB-MYLANLABS-2018M1068314

PATIENT
  Sex: Male

DRUGS (1)
  1. IMATINIB MYLAN 400 MG COMPRIM?S PELLICUL?S [Suspect]
     Active Substance: IMATINIB
     Indication: CHRONIC LEUKAEMIA
     Dosage: UNK

REACTIONS (1)
  - Transurethral prostatectomy [Unknown]
